FAERS Safety Report 8574659-1 (Version None)
Quarter: 2012Q3

REPORT INFORMATION
  Report Type: 
  Country: None (occurrence: None)
  Receive Date: 20120807
  Receipt Date: 20120727
  Transmission Date: 20120928
  Serious: Yes (Life-Threatening, Hospitalization)
  Sender: FDA-Public Use
  Company Number: US-009507513-1203USA03489

PATIENT

DRUGS (18)
  1. VINCRISTINE SULFATE [Suspect]
     Indication: DIFFUSE LARGE B-CELL LYMPHOMA
     Dosage: 1.4 MG/M2, ON DAY 3
     Route: 042
     Dates: start: 20120208, end: 20120208
  2. PREDNISONE [Suspect]
     Dosage: 100 MG, QD ON DAYS 3-7
     Route: 048
     Dates: start: 20120301, end: 20120305
  3. VORINOSTAT [Suspect]
     Dosage: ON DAY 1-9
     Route: 048
     Dates: start: 20120228, end: 20120307
  4. RITUXIMAB [Suspect]
     Dosage: 375 MG/M2, ON DAY 3
     Route: 042
     Dates: start: 20120301, end: 20120301
  5. CYCLOPHOSPHAMIDE [Suspect]
     Indication: DIFFUSE LARGE B-CELL LYMPHOMA
     Dosage: OVER 30-60 MINUTES ON DAY 3
     Route: 042
     Dates: start: 20120208, end: 20120208
  6. DOXORUBICIN HYDROCHLORIDE [Suspect]
     Dosage: 50 MG/M2, ON DAY 3
     Route: 042
     Dates: start: 20120712, end: 20120712
  7. PREDNISONE [Suspect]
     Indication: DIFFUSE LARGE B-CELL LYMPHOMA
     Dosage: 100 MG, QD ON DAYS 3-7
     Route: 048
     Dates: start: 20120208, end: 20120212
  8. VORINOSTAT [Suspect]
     Indication: DIFFUSE LARGE B-CELL LYMPHOMA
     Dosage: ON DAY 1-9
     Route: 048
     Dates: start: 20120206, end: 20120214
  9. CYCLOPHOSPHAMIDE [Suspect]
     Dosage: OVER 30-60 MINUTES ON DAY 3
     Route: 042
     Dates: start: 20120712, end: 20120712
  10. DOXORUBICIN HYDROCHLORIDE [Suspect]
     Dosage: 50 MG/M2, ON DAY 3
     Route: 042
     Dates: start: 20120301, end: 20120301
  11. VINCRISTINE SULFATE [Suspect]
     Dosage: 1.4 MG/M2, ON DAY 3
     Route: 042
     Dates: start: 20120712, end: 20120712
  12. VORINOSTAT [Suspect]
     Dosage: ON DAY 1-5
     Route: 048
     Dates: start: 20120710, end: 20120714
  13. RITUXIMAB [Suspect]
     Dosage: 375 MG/M2, ON DAY 3
     Route: 042
     Dates: start: 20120712, end: 20120712
  14. CYCLOPHOSPHAMIDE [Suspect]
     Dosage: OVER 30-60 MINUTES ON DAY 3
     Route: 042
     Dates: start: 20120301, end: 20120301
  15. VINCRISTINE SULFATE [Suspect]
     Dosage: 1.4 MG/M2, ON DAY 3
     Route: 042
     Dates: start: 20120301, end: 20120301
  16. RITUXIMAB [Suspect]
     Indication: DIFFUSE LARGE B-CELL LYMPHOMA
     Dosage: 375 MG/M2, ON DAY 3
     Route: 042
     Dates: start: 20120208, end: 20120208
  17. DOXORUBICIN HYDROCHLORIDE [Suspect]
     Indication: DIFFUSE LARGE B-CELL LYMPHOMA
     Dosage: 50 MG/M2, ON DAY 3
     Route: 042
     Dates: start: 20120208, end: 20120208
  18. PREDNISONE [Suspect]
     Dosage: 100 MG, QD ON DAYS 3-7
     Route: 048
     Dates: start: 20120712, end: 20120712

REACTIONS (3)
  - LUNG INFECTION [None]
  - NEUTROPHIL COUNT DECREASED [None]
  - FEBRILE NEUTROPENIA [None]
